FAERS Safety Report 10513483 (Version 1)
Quarter: 2014Q4

REPORT INFORMATION
  Report Type: Other
  Country: GB (occurrence: GB)
  Receive Date: 20141013
  Receipt Date: 20141013
  Transmission Date: 20150528
  Serious: Yes (Death, Other)
  Sender: FDA-Public Use
  Company Number: GB-TARO PHARMACEUTICALS U.S.A., INC-2014SUN02317

PATIENT

DRUGS (7)
  1. FUROSEMIDE. [Concomitant]
     Active Substance: FUROSEMIDE
  2. ROSUVASTATIN [Concomitant]
     Active Substance: ROSUVASTATIN
  3. LEVOTHYROXINE SODIUM. [Concomitant]
     Active Substance: LEVOTHYROXINE SODIUM
     Dosage: 100 MCG, UNK
     Dates: start: 201308
  4. LEVOTHYROXINE SODIUM. [Concomitant]
     Active Substance: LEVOTHYROXINE SODIUM
     Dosage: DOSE INCREASED FROM 100 MICROGRAMS
     Dates: start: 201302, end: 201308
  5. WARFARIN [Suspect]
     Active Substance: WARFARIN
     Indication: CEREBROVASCULAR ACCIDENT
     Dosage: AS PER INTERNATIONAL NORMALISED RATIO
     Route: 048
     Dates: start: 199703
  6. CEPHALEXIN. [Interacting]
     Active Substance: CEPHALEXIN
     Indication: KIDNEY INFECTION
     Dosage: 500 MG, TID
     Route: 048
     Dates: start: 20130806
  7. BISOPROLOL [Concomitant]
     Active Substance: BISOPROLOL

REACTIONS (6)
  - Drug interaction [Unknown]
  - International normalised ratio increased [Unknown]
  - Subdural haemorrhage [Fatal]
  - Seizure [Unknown]
  - Muscle twitching [Not Recovered/Not Resolved]
  - Transient ischaemic attack [None]
